FAERS Safety Report 6834959-X (Version None)
Quarter: 2010Q3

REPORT INFORMATION
  Report Type: 
  Country: None (occurrence: None)
  Receive Date: 20100713
  Receipt Date: 20100303
  Transmission Date: 20110219
  Serious: Yes (Other)
  Sender: FDA-Public Use
  Company Number: US-ASTRAZENECA-2009SE17845

PATIENT

DRUGS (5)
  1. SEROQUEL [Suspect]
     Indication: ANXIETY
     Dosage: 600-800 MG
     Route: 048
     Dates: start: 20030101
  2. CELEXA [Concomitant]
     Dosage: 80 MG IN MORNING
     Dates: start: 20030101
  3. CELEBREX [Concomitant]
     Dates: start: 20030101
  4. ZYRTEC [Concomitant]
     Dosage: 10 MG 1IN THE MORNING
     Dates: start: 20030101
  5. NORCO [Concomitant]
     Dosage: 7.5 TO 10 MG
     Route: 048

REACTIONS (2)
  - NEUROPATHY PERIPHERAL [None]
  - TYPE 1 DIABETES MELLITUS [None]
